FAERS Safety Report 22080094 (Version 6)
Quarter: 2025Q3

REPORT INFORMATION
  Report Type: Report from Study
  Country: US (occurrence: US)
  Receive Date: 20230309
  Receipt Date: 20250819
  Transmission Date: 20251021
  Serious: Yes (Hospitalization, Other)
  Sender: JAZZ
  Company Number: US-JAZZ PHARMACEUTICALS-2023-US-005301

PATIENT
  Age: 10 Year
  Sex: Male

DRUGS (6)
  1. EPIDIOLEX [Suspect]
     Active Substance: CANNABIDIOL
     Indication: Severe myoclonic epilepsy of infancy
     Dosage: 4 MILLILITER, BID
  2. EPIDIOLEX [Suspect]
     Active Substance: CANNABIDIOL
     Dosage: 4 MILLILITER, BID
  3. EPIDIOLEX [Suspect]
     Active Substance: CANNABIDIOL
     Dosage: 4 MILLIGRAM
  4. CLOBAZAM [Concomitant]
     Active Substance: CLOBAZAM
  5. BRIVIACT [Concomitant]
     Active Substance: BRIVARACETAM
  6. VALPROIC ACID [Concomitant]
     Active Substance: VALPROIC ACID

REACTIONS (8)
  - Seizure [Unknown]
  - Gait disturbance [Unknown]
  - Product administration interrupted [Unknown]
  - Nausea [Unknown]
  - Vomiting [Unknown]
  - Decreased appetite [Unknown]
  - Somnolence [Unknown]
  - Liver disorder [Unknown]

NARRATIVE: CASE EVENT DATE: 20230314
